FAERS Safety Report 14373688 (Version 1)
Quarter: 2018Q1

REPORT INFORMATION
  Report Type: Spontaneous
  Country: US (occurrence: US)
  Receive Date: 20180110
  Receipt Date: 20180110
  Transmission Date: 20180509
  Serious: Yes (Hospitalization)
  Sender: FDA-Public Use
  Company Number: US-DENDREON PHARMACEUTICALS LLC-2017DEN000037

PATIENT
  Age: 78 Year
  Sex: Male

DRUGS (1)
  1. PROVENGE [Suspect]
     Active Substance: SIPULEUCEL-T
     Indication: PROSTATE CANCER
     Dosage: 250 ML, 1IN 1D
     Route: 042
     Dates: start: 20171127, end: 20171127

REACTIONS (1)
  - Hip fracture [Recovered/Resolved]

NARRATIVE: CASE EVENT DATE: 201712
